FAERS Safety Report 22182882 (Version 3)
Quarter: 2023Q2

REPORT INFORMATION
  Report Type: Spontaneous
  Country: US (occurrence: US)
  Receive Date: 20230406
  Receipt Date: 20230601
  Transmission Date: 20230722
  Serious: No
  Sender: FDA-Public Use
  Company Number: US-ALLERGAN-2203154US

PATIENT
  Age: 26 Year
  Sex: Female

DRUGS (5)
  1. QULIPTA [Suspect]
     Active Substance: ATOGEPANT
     Indication: Migraine
     Dosage: UNK
     Dates: start: 20220612, end: 202301
  2. QULIPTA [Suspect]
     Active Substance: ATOGEPANT
     Dosage: UNK
     Dates: start: 20220606, end: 202206
  3. QULIPTA [Suspect]
     Active Substance: ATOGEPANT
     Dosage: UNK
     Dates: start: 20211122
  4. QULIPTA [Suspect]
     Active Substance: ATOGEPANT
     Dosage: UNK
     Dates: start: 20211001
  5. QULIPTA [Suspect]
     Active Substance: ATOGEPANT
     Dosage: UNK
     Dates: start: 202108

REACTIONS (6)
  - Polycystic ovaries [Not Recovered/Not Resolved]
  - Therapy interrupted [Unknown]
  - Product use issue [Unknown]
  - Drug ineffective [Unknown]
  - Migraine [Not Recovered/Not Resolved]
  - Headache [Not Recovered/Not Resolved]

NARRATIVE: CASE EVENT DATE: 20220119
